FAERS Safety Report 22348311 (Version 1)
Quarter: 2023Q2

REPORT INFORMATION
  Report Type: Spontaneous
  Country: GB (occurrence: GB)
  Receive Date: 20230522
  Receipt Date: 20230522
  Transmission Date: 20230721
  Serious: Yes (Other)
  Sender: FDA-Public Use
  Company Number: GB-MHRA-MED-202305081857246160-HMSJR

PATIENT

DRUGS (1)
  1. SOLIFENACIN SUCCINATE 5 MG [Suspect]
     Active Substance: SOLIFENACIN SUCCINATE
     Indication: Hypertonic bladder
     Dosage: 5 MG ONCE A DAY
     Route: 065
     Dates: start: 20230405, end: 20230422

REACTIONS (2)
  - Medication error [Unknown]
  - Dizziness [Recovered/Resolved]
